FAERS Safety Report 16571669 (Version 1)
Quarter: 2019Q3

REPORT INFORMATION
  Report Type: Spontaneous
  Country: US (occurrence: US)
  Receive Date: 20190714
  Receipt Date: 20190714
  Transmission Date: 20191004
  Serious: Yes (Disabling)
  Sender: FDA-Public Use
  Company Number: None

PATIENT
  Age: 60 Year
  Sex: Female
  Weight: 90 kg

DRUGS (1)
  1. CIPROFOXACIN [Suspect]
     Active Substance: CIPROFLOXACIN
     Indication: DIVERTICULITIS
     Dosage: ?          QUANTITY:1 TABLET(S);?
     Route: 048
     Dates: start: 20181030, end: 20181113

REACTIONS (5)
  - Tendon pain [None]
  - Musculoskeletal pain [None]
  - Back pain [None]
  - Crepitations [None]
  - Arthralgia [None]

NARRATIVE: CASE EVENT DATE: 20190227
